FAERS Safety Report 11067924 (Version 1)
Quarter: 2015Q2

REPORT INFORMATION
  Report Type: Spontaneous
  Country: US (occurrence: None)
  Receive Date: 20150424
  Receipt Date: 20150424
  Transmission Date: 20150821
  Serious: No
  Sender: FDA-Public Use
  Company Number: None

PATIENT
  Age: 66 Year
  Sex: Male
  Weight: 80.29 kg

DRUGS (3)
  1. TAMSULOSIN [Suspect]
     Active Substance: TAMSULOSIN
     Dosage: 0.4 MG, 1 PER DAY, ONCE, BY MOUTH
     Route: 048
     Dates: start: 20150309, end: 20150316
  2. TAMSULOSIN [Suspect]
     Active Substance: TAMSULOSIN
     Indication: URINARY INCONTINENCE
     Dosage: 0.4 MG, 1 PER DAY, ONCE, BY MOUTH
     Route: 048
     Dates: start: 20150309, end: 20150316
  3. ASPIRIN. [Concomitant]
     Active Substance: ASPIRIN

REACTIONS (7)
  - Cough [None]
  - Abdominal pain upper [None]
  - Rhinorrhoea [None]
  - Haemorrhage [None]
  - Abdominal pain [None]
  - Abdominal pain lower [None]
  - Back pain [None]

NARRATIVE: CASE EVENT DATE: 20150313
